FAERS Safety Report 8286503-0 (Version None)
Quarter: 2012Q2

REPORT INFORMATION
  Report Type: 
  Country: None (occurrence: None)
  Receive Date: 20120411
  Receipt Date: 20120411
  Transmission Date: 20120825
  Serious: Yes (Other)
  Sender: FDA-Public Use
  Company Number: None

PATIENT
  Sex: Female
  Weight: 68.0396 kg

DRUGS (2)
  1. PROMETRIUM [Suspect]
     Indication: MENOPAUSE
     Dosage: 1-100 MG TAB 1 DAILY
     Dates: start: 20100601
  2. BONIVA [Suspect]
     Indication: OSTEOPOROSIS
     Dosage: 150MG 1 MONTHLY
     Dates: start: 20080601

REACTIONS (10)
  - CHEST PAIN [None]
  - BLOOD PRESSURE INCREASED [None]
  - TRANSIENT ISCHAEMIC ATTACK [None]
  - HYPOAESTHESIA [None]
  - CYST [None]
  - CEREBROVASCULAR ACCIDENT [None]
  - HEART RATE INCREASED [None]
  - TREMOR [None]
  - BONE SCAN ABNORMAL [None]
  - CRYING [None]
